FAERS Safety Report 16276230 (Version 1)
Quarter: 2019Q2

REPORT INFORMATION
  Report Type: Report from Study
  Country: GB (occurrence: GB)
  Receive Date: 20190506
  Receipt Date: 20190506
  Transmission Date: 20190711
  Serious: Yes (Other)
  Sender: FDA-Public Use
  Company Number: GB-EMD SERONO-9027434

PATIENT
  Age: 37 Year
  Sex: Female

DRUGS (1)
  1. MAVENCLAD [Suspect]
     Active Substance: CLADRIBINE
     Indication: MULTIPLE SCLEROSIS
     Dosage: TWO TABLETS (EACH OF 10MG) ON DAY 1 AND ONE TABLET ON DAYS 2 TO 5 IN THE FIRST WEEK OF TREATMENT.
     Route: 048
     Dates: start: 20180510

REACTIONS (7)
  - Pyrexia [Unknown]
  - Constipation [Not Recovered/Not Resolved]
  - Lethargy [Unknown]
  - Blood test abnormal [Unknown]
  - Hepatitis B [Unknown]
  - Fatigue [Unknown]
  - Oral herpes [Recovering/Resolving]

NARRATIVE: CASE EVENT DATE: 201805
